FAERS Safety Report 7156000-4 (Version None)
Quarter: 2010Q4

REPORT INFORMATION
  Report Type: 
  Country: None (occurrence: None)
  Receive Date: 20101123
  Receipt Date: 20100817
  Transmission Date: 20110411
  Serious: Yes (Other)
  Sender: FDA-Public Use
  Company Number: 017376

PATIENT
  Sex: Female
  Weight: 83.9 kg

DRUGS (12)
  1. CIMZIA [Suspect]
     Indication: CROHN'S DISEASE
     Dosage: (400 MG  1X/4 WEEKS SUBCUTANEOUS)
     Route: 058
     Dates: start: 20100716
  2. MERCAPTOPURINE [Concomitant]
  3. METOPROLOL [Concomitant]
  4. WELLBUTRIN [Concomitant]
  5. ZOLOFT /01011401/ [Concomitant]
  6. XANAX [Concomitant]
  7. DEXLANSOPRAZOLE [Concomitant]
  8. ACYCLOVIR [Concomitant]
  9. IMODIUM /00384302/ [Concomitant]
  10. HYDROCODONE [Concomitant]
  11. ANUCORT-HC [Concomitant]
  12. VITAMIN B12 /00056201 [Concomitant]

REACTIONS (2)
  - FATIGUE [None]
  - RASH [None]
